FAERS Safety Report 4558331-0 (Version None)
Quarter: 2005Q1

REPORT INFORMATION
  Report Type: 
  Country: None (occurrence: None)
  Receive Date: 20050121
  Receipt Date: 20040209
  Transmission Date: 20050727
  Serious: No
  Sender: FDA-Public Use
  Company Number: US-BRISTOL-MYERS SQUIBB COMPANY-12500849

PATIENT
  Age: 7 Month
  Sex: Male
  Weight: 9 kg

DRUGS (1)
  1. CEFZIL [Suspect]
     Indication: OTITIS MEDIA
     Dosage: ON 05-FEB-2004, DOSAGE DECREASED TO 1 TEASPOON DAILY
     Route: 048
     Dates: start: 20040126

REACTIONS (2)
  - INSOMNIA [None]
  - PSYCHOMOTOR HYPERACTIVITY [None]
